FAERS Safety Report 5644578-9 (Version None)
Quarter: 2008Q1

REPORT INFORMATION
  Report Type: 
  Country: None (occurrence: None)
  Receive Date: 20080229
  Receipt Date: 20070316
  Transmission Date: 20080703
  Serious: No
  Sender: FDA-Public Use
  Company Number: A0643584A

PATIENT

DRUGS (1)
  1. VALTREX [Suspect]
     Indication: DRUG USE FOR UNKNOWN INDICATION
     Dosage: 500MG UNKNOWN
     Route: 065

REACTIONS (2)
  - FATIGUE [None]
  - MALAISE [None]
